FAERS Safety Report 4457188-6 (Version None)
Quarter: 2004Q3

REPORT INFORMATION
  Report Type: 
  Country: None (occurrence: None)
  Receive Date: 20040830
  Receipt Date: 20040524
  Transmission Date: 20050211
  Serious: No
  Sender: FDA-Public Use
  Company Number: 206733

PATIENT
  Age: 53 Year
  Sex: Male
  Weight: 91.2 kg

DRUGS (1)
  1. XOLAIR [Suspect]
     Dosage: 150 MG, 1/MONTH, SUBCUTANEOUS
     Route: 058
     Dates: start: 20031022

REACTIONS (1)
  - BASAL CELL CARCINOMA [None]
